FAERS Safety Report 5592064-7 (Version None)
Quarter: 2007Q4

REPORT INFORMATION
  Report Type: 
  Country: None (occurrence: None)
  Receive Date: 20071217
  Receipt Date: 20071003
  Transmission Date: 20080405
  Serious: No
  Sender: FDA-Public Use
  Company Number: BDI-010304

PATIENT
  Age: 60 Year
  Sex: Male

DRUGS (2)
  1. MULTIHANCE [Suspect]
     Indication: COMPUTERISED TOMOGRAM
     Dosage: 19 ML ONCE 065
     Dates: start: 20071003, end: 20071003
  2. MULTIHANCE [Suspect]
     Indication: SCAN BRAIN
     Dosage: 19 ML ONCE 065
     Dates: start: 20071003, end: 20071003

REACTIONS (2)
  - STOMACH DISCOMFORT [None]
  - VOMITING [None]
